FAERS Safety Report 9700063 (Version 1)
Quarter: 2013Q4

REPORT INFORMATION
  Report Type: Spontaneous
  Country: US (occurrence: US)
  Receive Date: 20131121
  Receipt Date: 20131121
  Transmission Date: 20140711
  Serious: No
  Sender: FDA-Public Use
  Company Number: US-009507513-1311USA007673

PATIENT
  Age: 32 Year
  Sex: Male

DRUGS (3)
  1. SAPHRIS [Suspect]
     Indication: SCHIZOPHRENIA, PARANOID TYPE
     Dosage: 10 MG, BID
     Route: 060
  2. SAPHRIS [Suspect]
     Dosage: 5 MG, TID
     Route: 060
  3. GEODON [Concomitant]

REACTIONS (3)
  - Tongue ulceration [Not Recovered/Not Resolved]
  - Drug prescribing error [Unknown]
  - Inappropriate schedule of drug administration [Unknown]
